FAERS Safety Report 21017392 (Version 1)
Quarter: 2022Q2

REPORT INFORMATION
  Report Type: Spontaneous
  Country: US (occurrence: US)
  Receive Date: 20220628
  Receipt Date: 20220628
  Transmission Date: 20220721
  Serious: No
  Sender: FDA-Public Use
  Company Number: US-MYLANLABS-2022M1047365

PATIENT
  Age: 95 Year
  Sex: Female
  Weight: 37.19 kg

DRUGS (1)
  1. CYCLOSPORINE [Suspect]
     Active Substance: CYCLOSPORINE
     Indication: Macular degeneration
     Dosage: 0.05 PERCENT, QD (1 DROP FOR EACH EYE ONCE A DAY)
     Route: 047
     Dates: start: 20220522, end: 20220525

REACTIONS (2)
  - Eyelash injury [Recovered/Resolved]
  - Vision blurred [Not Recovered/Not Resolved]

NARRATIVE: CASE EVENT DATE: 20220523
